FAERS Safety Report 24362290 (Version 5)
Quarter: 2024Q4

REPORT INFORMATION
  Report Type: Spontaneous
  Country: JP (occurrence: JP)
  Receive Date: 20240925
  Receipt Date: 20241202
  Transmission Date: 20250114
  Serious: Yes (Other)
  Sender: PFIZER
  Company Number: JP-ONO-2024JP019458

PATIENT
  Age: 80 Year
  Sex: Male

DRUGS (3)
  1. BRAFTOVI [Suspect]
     Active Substance: ENCORAFENIB
     Indication: Thyroid cancer
     Dosage: UNK
     Route: 048
     Dates: start: 20240814, end: 20240918
  2. MEKTOVI [Suspect]
     Active Substance: BINIMETINIB
     Indication: Thyroid cancer
     Dosage: UNK
     Route: 048
     Dates: start: 20240814, end: 20240918
  3. LEVOTHYROXINE [Concomitant]
     Active Substance: LEVOTHYROXINE
     Dosage: UNK
     Route: 065

REACTIONS (2)
  - Liver disorder [Recovered/Resolved]
  - Thyroid function test abnormal [Recovering/Resolving]

NARRATIVE: CASE EVENT DATE: 20240918
